FAERS Safety Report 22143657 (Version 1)
Quarter: 2023Q1

REPORT INFORMATION
  Report Type: Report from Study
  Country: US (occurrence: US)
  Receive Date: 20230327
  Receipt Date: 20230327
  Transmission Date: 20230418
  Serious: Yes (Hospitalization)
  Sender: FDA-Public Use
  Company Number: US-BAYER-2023A035405

PATIENT
  Age: 41 Year
  Sex: Female

DRUGS (7)
  1. STIVARGA [Suspect]
     Active Substance: REGORAFENIB
     Indication: Colon cancer
     Dosage: 120 MG, QD ON DAYS 1-21, THEN NO DRUG FOR 7 DAYS
     Route: 048
     Dates: start: 20230313
  2. MIRALAX [Concomitant]
     Active Substance: POLYETHYLENE GLYCOL 3350
     Dosage: UNK
  3. LONSURF [Concomitant]
     Active Substance: TIPIRACIL HYDROCHLORIDE\TRIFLURIDINE
     Dosage: UNK
     Dates: start: 20220830
  4. BIFIDOBACTERIUM ANIMALIS LACTIS\LACTOBACILLUS ACIDOPHILUS [Concomitant]
     Active Substance: BIFIDOBACTERIUM ANIMALIS LACTIS\LACTOBACILLUS ACIDOPHILUS
     Dosage: UNK
  5. LYNPARZA [Concomitant]
     Active Substance: OLAPARIB
     Dosage: UNK
  6. REISHI MUSHROOM [Concomitant]
     Dosage: UNK
  7. PROPOLIS WAX [Concomitant]
     Active Substance: PROPOLIS WAX
     Dosage: UNK

REACTIONS (5)
  - Adverse drug reaction [Not Recovered/Not Resolved]
  - Hepatic failure [None]
  - Blood disorder [None]
  - Fatigue [Not Recovered/Not Resolved]
  - Off label use [None]

NARRATIVE: CASE EVENT DATE: 20230313
